FAERS Safety Report 17930883 (Version 1)
Quarter: 2020Q2

REPORT INFORMATION
  Report Type: Spontaneous
  Country: DE (occurrence: DE)
  Receive Date: 20200623
  Receipt Date: 20200623
  Transmission Date: 20200714
  Serious: Yes (Hospitalization, Other)
  Sender: FDA-Public Use
  Company Number: DE-TEVA-2020-DE-1789202

PATIENT
  Age: 79 Year
  Sex: Female

DRUGS (9)
  1. LEVOTHYROXIN-NATRIUM [Concomitant]
     Active Substance: LEVOTHYROXINE SODIUM
     Dosage: 100 MICROGRAM DAILY; 1-0-0-0
  2. OSTEOPLUS [Concomitant]
     Dosage: 1 DOSAGE FORMS DAILY; 0-1-0-0,
  3. MELPERON [Concomitant]
     Active Substance: MELPERONE
     Dosage: 5 MG, NEED, SOLUTION
  4. METAMIZOL [Concomitant]
     Active Substance: METAMIZOLE SODIUM
     Dosage: NEED, DROP
  5. PARACETAMOL [Concomitant]
     Active Substance: ACETAMINOPHEN
     Dosage: 1000 MG, NEED
  6. TILIDIN 100/8 RETARD-1A PHARMA [Concomitant]
     Dosage: 8 | 100 MG, NEED
  7. PREDNISOLON [Suspect]
     Active Substance: PREDNISOLONE
     Dosage: 2.5 MILLIGRAM DAILY;  1-0-0-0,
     Route: 065
  8. DULCOLAX NOS [Concomitant]
     Active Substance: BISACODYL OR DOCUSATE SODIUM
     Dosage: 10MG
  9. TAVOR [Concomitant]
     Dosage: 1.0 MG, NEED, UNIT DOSE: 1 MG

REACTIONS (2)
  - Diarrhoea [Unknown]
  - Haematemesis [Unknown]
